FAERS Safety Report 8972212 (Version 1)
Quarter: 2012Q4

REPORT INFORMATION
  Report Type: Spontaneous
  Country: US (occurrence: None)
  Receive Date: 20121211
  Receipt Date: 20121211
  Transmission Date: 20130627
  Serious: No
  Sender: FDA-Public Use
  Company Number: 2012MA013747

PATIENT
  Age: 69 Year
  Sex: Female

DRUGS (4)
  1. NEOMYCIN AND POLYMYXIN B SULFATES, AND BACITRACIN ZINC [Suspect]
     Indication: ABRASIONS
  2. INSULIN [Concomitant]
  3. ANTIHYPERTENSIVE [Concomitant]
  4. TRIPLE ANTIBIOTIC [Concomitant]

REACTIONS (6)
  - Dysgeusia [None]
  - Chills [None]
  - Abdominal discomfort [None]
  - Diarrhoea [None]
  - Nausea [None]
  - Drug ineffective [None]
